FAERS Safety Report 8829688 (Version 1)
Quarter: 2012Q4

REPORT INFORMATION
  Report Type: Report from Study
  Country: BE (occurrence: BE)
  Receive Date: 20121008
  Receipt Date: 20121008
  Transmission Date: 20130627
  Serious: Yes (Hospitalization)
  Sender: FDA-Public Use
  Company Number: BE-ROCHE-1129905

PATIENT
  Age: 47 Year
  Sex: Male
  Weight: 100 kg

DRUGS (3)
  1. XELODA [Suspect]
     Indication: COLON CANCER
     Dosage: Most recent dose prior to SAE 14/Sep/2011
     Route: 048
     Dates: start: 20110804
  2. LOPERAMIDE [Concomitant]
     Indication: DIARRHOEA
     Route: 048
     Dates: start: 201108
  3. NEUROGEN [Concomitant]
     Indication: PAIN
     Route: 054
     Dates: start: 201108, end: 20111101

REACTIONS (1)
  - Wound secretion [Recovered/Resolved]
